FAERS Safety Report 4486694-3 (Version None)
Quarter: 2004Q4

REPORT INFORMATION
  Report Type: 
  Country: None (occurrence: None)
  Receive Date: 20041021
  Receipt Date: 20041008
  Transmission Date: 20050328
  Serious: Yes (Other)
  Sender: FDA-Public Use
  Company Number: 2004238161US

PATIENT
  Sex: Female
  Weight: 106.1 kg

DRUGS (6)
  1. CELEBREX [Suspect]
     Indication: ARTHRITIS
     Dosage: 200 MG, QD, ORAL
     Route: 048
     Dates: start: 20020801
  2. PREMARIN [Concomitant]
  3. PROPOXYPHENE NAPSYLATE (DEXTROPROPOXYPHENE [Concomitant]
  4. NAPSILATE [Concomitant]
  5. TRIAMTERENE AND HYDROCHLOROTHIAZIDE [Concomitant]
  6. AMITRIPTYLINE HCL [Concomitant]

REACTIONS (1)
  - CARDIOMEGALY [None]
